FAERS Safety Report 17208814 (Version 2)
Quarter: 2020Q1

REPORT INFORMATION
  Report Type: Spontaneous
  Country: US (occurrence: US)
  Receive Date: 20191227
  Receipt Date: 20200219
  Transmission Date: 20200409
  Serious: No
  Sender: FDA-Public Use
  Company Number: NVSC2019US080625

PATIENT
  Sex: Male

DRUGS (1)
  1. MEKINIST [Suspect]
     Active Substance: TRAMETINIB DIMETHYL SULFOXIDE
     Indication: FIBROMA
     Dosage: UNK (USING A 0.5 MG TABLET TO DILUTE AS INSTRUVTED TO GIVE 0.4 MG (4ML) BY MOUTH ONCE DAILY).
     Route: 048
     Dates: start: 201904

REACTIONS (2)
  - Product use in unapproved indication [Unknown]
  - Adverse drug reaction [Unknown]
